FAERS Safety Report 21566031 (Version 1)
Quarter: 2022Q4

REPORT INFORMATION
  Report Type: Spontaneous
  Country: US (occurrence: US)
  Receive Date: 20221108
  Receipt Date: 20221108
  Transmission Date: 20230113
  Serious: No
  Sender: FDA-Public Use
  Company Number: US-TEVA-2022-US-2819924

PATIENT
  Sex: Male

DRUGS (2)
  1. CARISOPRODOL [Suspect]
     Active Substance: CARISOPRODOL
     Indication: Product used for unknown indication
     Route: 065
  2. OXYCODONE [Concomitant]
     Active Substance: OXYCODONE
     Indication: Product used for unknown indication

REACTIONS (7)
  - Gait disturbance [Unknown]
  - Sitting disability [Unknown]
  - Myalgia [Unknown]
  - Neck pain [Unknown]
  - Drug ineffective [Unknown]
  - Product physical issue [Unknown]
  - Product size issue [Unknown]
